FAERS Safety Report 8545426-X (Version None)
Quarter: 2012Q3

REPORT INFORMATION
  Report Type: 
  Country: None (occurrence: None)
  Receive Date: 20120727
  Receipt Date: 20111103
  Transmission Date: 20120928
  Serious: No
  Sender: FDA-Public Use
  Company Number: US-ASTRAZENECA-2011SE66770

PATIENT
  Age: 51 Year
  Sex: Female
  Weight: 79.8 kg

DRUGS (4)
  1. SEROQUEL XR [Suspect]
     Indication: BIPOLAR DISORDER
     Route: 048
     Dates: start: 20100101
  2. SEROQUEL XR [Suspect]
     Indication: DEPRESSION
     Route: 048
     Dates: start: 20100101
  3. LIRICA [Concomitant]
  4. AMEPRIL [Concomitant]
     Indication: CARDIAC DISORDER

REACTIONS (5)
  - WEIGHT INCREASED [None]
  - THERAPEUTIC RESPONSE UNEXPECTED [None]
  - DRUG DOSE OMISSION [None]
  - DEPRESSION [None]
  - APATHY [None]
